FAERS Safety Report 6535193-3 (Version None)
Quarter: 2010Q1

REPORT INFORMATION
  Report Type: 
  Country: None (occurrence: None)
  Receive Date: 20100111
  Receipt Date: 20100111
  Transmission Date: 20100710
  Serious: No
  Sender: FDA-Public Use
  Company Number: None

PATIENT
  Sex: Male
  Weight: 56.246 kg

DRUGS (1)
  1. CIPRO [Suspect]
     Indication: FALL
     Dosage: 250 MG 1 DAY - (2)
     Dates: start: 20091219

REACTIONS (4)
  - BREAST PAIN [None]
  - DYSPEPSIA [None]
  - GAIT DISTURBANCE [None]
  - PAIN IN EXTREMITY [None]
